FAERS Safety Report 15022435 (Version 3)
Quarter: 2019Q2

REPORT INFORMATION
  Report Type: Spontaneous
  Country: US (occurrence: US)
  Receive Date: 20180618
  Receipt Date: 20190506
  Transmission Date: 20190711
  Serious: No
  Sender: FDA-Public Use
  Company Number: US-PFIZER INC-2018240978

PATIENT
  Age: 43 Year
  Sex: Female
  Weight: 77.11 kg

DRUGS (3)
  1. LYRICA [Suspect]
     Active Substance: PREGABALIN
     Dosage: 200 MG, 2X/DAY
  2. LYRICA [Suspect]
     Active Substance: PREGABALIN
     Indication: FIBROMYALGIA
     Dosage: 2 DF, DAILY
  3. LYRICA [Suspect]
     Active Substance: PREGABALIN
     Dosage: 1 DF, DAILY

REACTIONS (12)
  - Nausea [Unknown]
  - Diarrhoea [Unknown]
  - Abdominal discomfort [Not Recovered/Not Resolved]
  - Withdrawal syndrome [Recovered/Resolved]
  - Insomnia [Unknown]
  - Feeling of body temperature change [Unknown]
  - Fatigue [Not Recovered/Not Resolved]
  - Malaise [Unknown]
  - Condition aggravated [Unknown]
  - Chills [Unknown]
  - Pain [Unknown]
  - Intentional product misuse [Not Recovered/Not Resolved]

NARRATIVE: CASE EVENT DATE: 201904
